FAERS Safety Report 7973896-4 (Version None)
Quarter: 2011Q4

REPORT INFORMATION
  Report Type: 
  Country: None (occurrence: None)
  Receive Date: 20111213
  Receipt Date: 20111205
  Transmission Date: 20120403
  Serious: Yes (Other)
  Sender: FDA-Public Use
  Company Number: US-BRISTOL-MYERS SQUIBB COMPANY-16270480

PATIENT
  Sex: Male

DRUGS (5)
  1. CALCIUM [Concomitant]
  2. ORENCIA [Suspect]
     Dosage: APPROXIMATELY 24 HOURS AGO,RECEIVED INF
     Dates: start: 20080404
  3. PREDNISONE TAB [Concomitant]
  4. VITAMIN D [Concomitant]
  5. FLOMAX [Concomitant]

REACTIONS (2)
  - PAINFUL RESPIRATION [None]
  - CHEST DISCOMFORT [None]
